FAERS Safety Report 21002536 (Version 1)
Quarter: 2022Q2

REPORT INFORMATION
  Report Type: Spontaneous
  Country: US (occurrence: US)
  Receive Date: 20220624
  Receipt Date: 20220624
  Transmission Date: 20220721
  Serious: No
  Sender: FDA-Public Use
  Company Number: US-BioHaven Pharmaceuticals-2022BHV001237

PATIENT
  Age: 37 Year
  Sex: Female
  Weight: 72.640 kg

DRUGS (5)
  1. NURTEC ODT [Suspect]
     Active Substance: RIMEGEPANT SULFATE
     Indication: Migraine
     Dosage: 1 TABLET
     Route: 065
     Dates: start: 2021
  2. DILTIAZEM [Concomitant]
     Active Substance: DILTIAZEM
     Indication: Blood pressure increased
     Dosage: CALLER CLARIFIED THAT THE TIME SHE TOOK NURTEC WITH HER BLOOD PRESSURE MEDICATION, DILTIAZEM, WAS WH
     Route: 065
     Dates: end: 2021
  3. DILTIAZEM [Concomitant]
     Active Substance: DILTIAZEM
     Indication: Blood pressure increased
     Dosage: THE PATIENT REPORTED THAT HER HEALTHCARE PROVIDER INCREASED HER DILTIAZEM DOSAGE TO 180MG ON AN UNKN
     Route: 065
     Dates: start: 2021
  4. IRON [Concomitant]
     Active Substance: IRON
     Indication: Product used for unknown indication
     Route: 065
  5. VITAMIN D NOS [Concomitant]
     Active Substance: VITAMIN D NOS
     Indication: Product used for unknown indication
     Route: 065

REACTIONS (2)
  - Condition aggravated [Unknown]
  - Blood pressure increased [Not Recovered/Not Resolved]
